FAERS Safety Report 8793736 (Version 2)
Quarter: 2012Q4

REPORT INFORMATION
  Report Type: 
  Country: GB (occurrence: GB)
  Receive Date: 20120917
  Receipt Date: 20120920
  Transmission Date: 20130627
  Serious: Yes (Hospitalization)
  Sender: FDA-Public Use
  Company Number: PHFR2012GB004973

PATIENT
  Sex: Male

DRUGS (10)
  1. CLOZARIL [Suspect]
     Indication: SCHIZOPHRENIA
     Dosage: 850 mg,
     Route: 048
     Dates: start: 20060131
  2. HYOSCINE HYDROBROMIDE [Concomitant]
  3. LANSOPRAZOLE [Concomitant]
  4. PREGABALIN [Concomitant]
  5. CHLORPROMAZINE [Concomitant]
  6. DIAZEPAM [Concomitant]
  7. PROCYCLIDINE [Concomitant]
  8. MUROCEL [Concomitant]
  9. PARACETAMOL [Concomitant]
  10. FORCEVAL [Concomitant]

REACTIONS (2)
  - Thinking abnormal [Recovering/Resolving]
  - Hallucination [Recovering/Resolving]
